FAERS Safety Report 8466477 (Version 2)
Quarter: 2012Q4

REPORT INFORMATION
  Report Type: 
  Country: US (occurrence: US)
  Receive Date: 20120319
  Receipt Date: 20120913
  Transmission Date: 20130627
  Serious: Yes (Other)
  Sender: FDA-Public Use
  Company Number: US-ROCHE-788981

PATIENT
  Age: 35 Year
  Sex: Female
  Weight: 75.82 kg

DRUGS (2)
  1. ACCUTANE [Suspect]
     Indication: PRODUCT USED FOR UNKNOWN INDICATION
     Route: 065
  2. ACCUTANE [Suspect]
     Route: 065

REACTIONS (6)
  - Colitis ulcerative [Unknown]
  - Inflammatory bowel disease [Unknown]
  - Emotional distress [Unknown]
  - Intestinal haemorrhage [Unknown]
  - Irritable bowel syndrome [Unknown]
  - Lymphadenopathy [Unknown]
